FAERS Safety Report 4726256-3 (Version None)
Quarter: 2005Q3

REPORT INFORMATION
  Report Type: 
  Country: None (occurrence: None)
  Receive Date: 20050725
  Receipt Date: 20050711
  Transmission Date: 20060218
  Serious: Yes (Hospitalization)
  Sender: FDA-Public Use
  Company Number: HQWYE182413JUL05

PATIENT
  Age: 62 Year
  Sex: Male

DRUGS (3)
  1. RAPAMUNE [Suspect]
     Indication: PROPHYLAXIS AGAINST TRANSPLANT REJECTION
     Dosage: 1 MG 1X PER 1 DAY
     Route: 048
     Dates: start: 20040716
  2. CYCLOSPORINE [Concomitant]
  3. PREDNISONE [Concomitant]

REACTIONS (2)
  - COLON CANCER [None]
  - HAEMATOCHEZIA [None]
